FAERS Safety Report 7058008-6 (Version None)
Quarter: 2010Q4

REPORT INFORMATION
  Report Type: 
  Country: None (occurrence: None)
  Receive Date: 20101022
  Receipt Date: 20101018
  Transmission Date: 20110411
  Serious: Yes (Life-Threatening, Other)
  Sender: FDA-Public Use
  Company Number: PHHY2010FI51225

PATIENT
  Age: 45 Year
  Sex: Female

DRUGS (1)
  1. LEPONEX [Suspect]
     Dosage: 100 MG/DAY

REACTIONS (2)
  - AGRANULOCYTOSIS [None]
  - PSEUDOMONAL SEPSIS [None]
